FAERS Safety Report 7373830-4 (Version None)
Quarter: 2011Q1

REPORT INFORMATION
  Report Type: 
  Country: None (occurrence: None)
  Receive Date: 20110325
  Receipt Date: 20110321
  Transmission Date: 20110831
  Serious: No
  Sender: FDA-Public Use
  Company Number: US-PFIZER INC-2010095418

PATIENT
  Sex: Female
  Weight: 81 kg

DRUGS (3)
  1. NORVASC [Concomitant]
     Indication: HYPERTENSION
     Dosage: UNK
  2. ATENOLOL [Concomitant]
     Indication: HYPERTENSION
     Dosage: UNK
  3. CHANTIX [Suspect]
     Indication: SMOKING CESSATION THERAPY
     Dosage: 0.5 MG, 1X/DAY
     Route: 048
     Dates: start: 20100603, end: 20100723

REACTIONS (8)
  - INSOMNIA [None]
  - ANXIETY [None]
  - PERSONALITY DISORDER [None]
  - TREMOR [None]
  - RHINORRHOEA [None]
  - FEELING OF BODY TEMPERATURE CHANGE [None]
  - IRRITABILITY [None]
  - WITHDRAWAL SYNDROME [None]
